FAERS Safety Report 5766244-1 (Version None)
Quarter: 2008Q2

REPORT INFORMATION
  Report Type: 
  Country: None (occurrence: None)
  Receive Date: 20080611
  Receipt Date: 20080428
  Transmission Date: 20081010
  Serious: No
  Sender: FDA-Public Use
  Company Number: US-ABBOTT-08P-163-0448107-00

PATIENT
  Sex: Male
  Weight: 86.26 kg

DRUGS (22)
  1. HUMIRA [Suspect]
     Indication: RHEUMATOID ARTHRITIS
     Route: 058
     Dates: start: 20071127, end: 20080206
  2. HUMIRA [Suspect]
     Route: 058
     Dates: start: 20080213, end: 20080423
  3. HYDROXYZINE HYDROCHLORIDE [Concomitant]
     Indication: PRURITUS
     Route: 048
     Dates: start: 20080327
  4. CYCLOSPORINE [Concomitant]
     Indication: DRY EYE
     Route: 047
  5. PATADAY [Concomitant]
     Indication: EYE PRURITUS
     Route: 047
  6. LEFLUNOMIDE [Concomitant]
     Indication: RHEUMATOID ARTHRITIS
     Route: 048
  7. TRAMADOL HCL [Concomitant]
     Indication: PAIN
     Route: 048
  8. PREDNISONE TAB [Concomitant]
     Indication: RHEUMATOID ARTHRITIS
     Route: 048
  9. CELECOXIB [Concomitant]
     Indication: RHEUMATOID ARTHRITIS
     Route: 048
  10. OMEPRAZOLE [Concomitant]
     Indication: DYSPEPSIA
     Route: 048
  11. FLUTICASONE PROPIONATE [Concomitant]
     Indication: SEASONAL ALLERGY
     Route: 045
  12. CETIRIZINE HYDROCHLORIDE [Concomitant]
     Indication: SEASONAL ALLERGY
     Dosage: 10 MG- 0.5 TAB DAILY
     Route: 048
  13. MINOCYCLINE HCL [Concomitant]
     Indication: DRUG USE FOR UNKNOWN INDICATION
     Route: 048
  14. ASPIRIN [Concomitant]
     Indication: PROPHYLAXIS
  15. CALCIUM W/MINERALS/VITAMIN D NOS [Concomitant]
     Indication: MINERAL SUPPLEMENTATION
     Route: 048
  16. GLUCOSAMINE [Concomitant]
     Indication: RHEUMATOID ARTHRITIS
     Route: 048
  17. CHONDROITIN [Concomitant]
     Indication: RHEUMATOID ARTHRITIS
     Route: 048
  18. MSN [Concomitant]
     Indication: DRUG USE FOR UNKNOWN INDICATION
     Route: 048
  19. ESTROCEN [Concomitant]
     Indication: DRUG USE FOR UNKNOWN INDICATION
     Route: 048
  20. MEGA MEN'S VITAMINS [Concomitant]
     Indication: VITAMIN SUPPLEMENTATION
     Route: 048
  21. NICOTINAM. W/PYRIDOXI. HCL/RIBOFL./THIAM. HCL [Concomitant]
     Indication: VITAMIN SUPPLEMENTATION
     Route: 048
  22. ALLIUM SATIVUM [Concomitant]
     Indication: MEDICAL DIET
     Route: 048

REACTIONS (9)
  - ASTHENIA [None]
  - DRUG INEFFECTIVE [None]
  - DRY MOUTH [None]
  - ERECTILE DYSFUNCTION [None]
  - LIBIDO DECREASED [None]
  - PAIN OF SKIN [None]
  - PRURITUS [None]
  - RHEUMATOID ARTHRITIS [None]
  - SKIN BURNING SENSATION [None]
